FAERS Safety Report 13100917 (Version 1)
Quarter: 2017Q1

REPORT INFORMATION
  Report Type: Spontaneous
  Country: JP (occurrence: JP)
  Receive Date: 20170110
  Receipt Date: 20170110
  Transmission Date: 20170428
  Serious: Yes (Other)
  Sender: FDA-Public Use
  Company Number: JP-FAC-000213

PATIENT
  Age: 45 Year
  Sex: Female

DRUGS (2)
  1. TOLAZOLINE HYDROCHLORIDE. [Suspect]
     Active Substance: TOLAZOLINE HYDROCHLORIDE
     Indication: INSOMNIA
     Route: 065
  2. CEFTRIAXONE. [Suspect]
     Active Substance: CEFTRIAXONE
     Indication: PHARYNGITIS
     Route: 065

REACTIONS (2)
  - Torsade de pointes [Unknown]
  - Electrocardiogram QT prolonged [Not Recovered/Not Resolved]
